FAERS Safety Report 11575936 (Version 3)
Quarter: 2015Q4

REPORT INFORMATION
  Report Type: Report from Study
  Country: GB (occurrence: GB)
  Receive Date: 20150930
  Receipt Date: 20151221
  Transmission Date: 20160304
  Serious: Yes (Death, Other)
  Sender: FDA-Public Use
  Company Number: GB-BTG INTERNATIONAL LTD-BTG00371

PATIENT

DRUGS (2)
  1. DIGIFAB [Suspect]
     Active Substance: OVINE DIGOXIN IMMUNE FAB
     Indication: TOXICITY TO VARIOUS AGENTS
     Dosage: 120 MG, SINGLE
     Dates: start: 20150915
  2. DIGOXIN. [Suspect]
     Active Substance: DIGOXIN
     Indication: ATRIAL FIBRILLATION
     Dosage: 250 ?G, QD (DAILY)

REACTIONS (6)
  - Drug ineffective [None]
  - Toxicity to various agents [None]
  - Renal replacement therapy [None]
  - Acute kidney injury [Fatal]
  - Cardiac arrest [None]
  - Myocardial ischaemia [Fatal]

NARRATIVE: CASE EVENT DATE: 20150916
